FAERS Safety Report 8252846-X (Version None)
Quarter: 2012Q2

REPORT INFORMATION
  Report Type: 
  Country: None (occurrence: None)
  Receive Date: 20120402
  Receipt Date: 20120125
  Transmission Date: 20120825
  Serious: No
  Sender: FDA-Public Use
  Company Number: US-ABBOTT-12P-163-0893390-00

PATIENT
  Sex: Male
  Weight: 137.56 kg

DRUGS (8)
  1. GLYBURIDE [Concomitant]
     Indication: DIABETES MELLITUS
  2. ANDROGEL [Suspect]
     Indication: BLOOD TESTOSTERONE DECREASED
     Dosage: 2 PUMPS EVERY DAY
     Dates: start: 20020101
  3. ANDROGEL [Suspect]
     Dosage: 1 PUMPS EVERY OTHER DAY
  4. OXYCODONE HCL [Suspect]
     Indication: VENOUS ULCER PAIN
     Dates: start: 20111001
  5. ANDROGEL [Suspect]
     Dosage: 2PUMP EVERY OTHER DAY
  6. OXYCODONE HCL [Suspect]
     Indication: SKIN ULCER
  7. METFORMIN HCL [Concomitant]
     Indication: DIABETES MELLITUS
  8. JUVEN [Suspect]
     Indication: MEDICAL DIET

REACTIONS (9)
  - BLOOD TESTOSTERONE INCREASED [None]
  - SKIN ULCER [None]
  - BACTERIAL INFECTION [None]
  - RASH [None]
  - INCORRECT DOSE ADMINISTERED [None]
  - MEDICATION ERROR [None]
  - ERYTHEMA [None]
  - SKIN IRRITATION [None]
  - FUNGAL INFECTION [None]
